FAERS Safety Report 9915693 (Version 2)
Quarter: 2014Q1

REPORT INFORMATION
  Report Type: Report from Study
  Country: US (occurrence: US)
  Receive Date: 20140221
  Receipt Date: 20140227
  Transmission Date: 20141002
  Serious: Yes (Other)
  Sender: FDA-Public Use
  Company Number: US-ROCHE-1349045

PATIENT
  Sex: Male
  Weight: 20.8 kg

DRUGS (2)
  1. NUTROPIN AQ [Suspect]
     Indication: DWARFISM
     Route: 058
     Dates: end: 20131008
  2. NUTROPIN AQ [Suspect]
     Route: 058
     Dates: start: 20131008

REACTIONS (1)
  - Blood urea increased [Unknown]
